FAERS Safety Report 8871334 (Version 1)
Quarter: 2012Q4

REPORT INFORMATION
  Report Type: Spontaneous
  Country: US (occurrence: None)
  Receive Date: 20121024
  Receipt Date: 20121024
  Transmission Date: 20130627
  Serious: Yes (Other)
  Sender: FDA-Public Use
  Company Number: 2012EXPUS00050

PATIENT
  Age: 40 Year
  Sex: Male

DRUGS (1)
  1. EXPAREL [Suspect]
     Indication: POSTOPERATIVE ANALGESIA
     Dosage: 20cc, diluted X2
     Dates: start: 20121005, end: 20121005

REACTIONS (1)
  - Post procedural haemorrhage [None]
